FAERS Safety Report 25966159 (Version 3)
Quarter: 2025Q4

REPORT INFORMATION
  Report Type: Spontaneous
  Country: JP (occurrence: JP)
  Receive Date: 20251028
  Receipt Date: 20251216
  Transmission Date: 20260117
  Serious: Yes (Hospitalization, Other)
  Sender: VIIV
  Company Number: JP-VIIV HEALTHCARE-JP2025136600

PATIENT
  Age: 53 Year
  Sex: Male

DRUGS (11)
  1. DOVATO [Suspect]
     Active Substance: DOLUTEGRAVIR SODIUM\LAMIVUDINE
     Dosage: 1 DF, 1D
  2. PREDNISOLONE [Suspect]
     Active Substance: PREDNISOLONE
     Indication: Ascites
     Dosage: 60 MG, QD, 1 MG/KG/DAY, TAPERED BY 10MG WEEKLY
  3. ISONIAZID [Concomitant]
     Active Substance: ISONIAZID
     Indication: Disseminated tuberculosis
     Dosage: UNK
  4. RIFABUTIN [Concomitant]
     Active Substance: RIFABUTIN
     Indication: Disseminated tuberculosis
     Dosage: UNK
  5. ETHAMBUTOL HYDROCHLORIDE [Concomitant]
     Active Substance: ETHAMBUTOL HYDROCHLORIDE
     Indication: Disseminated tuberculosis
     Dosage: UNK
  6. PYRAZINAMIDE [Concomitant]
     Active Substance: PYRAZINAMIDE
     Indication: Disseminated tuberculosis
     Dosage: UNK
  7. SULFAMETHOXAZOLE\TRIMETHOPRIM [Concomitant]
     Active Substance: SULFAMETHOXAZOLE\TRIMETHOPRIM
     Indication: Antifungal prophylaxis
     Dosage: 80 MG TMP/400MG SMX, ONCE DAILY
  8. SULFAMETHOXAZOLE\TRIMETHOPRIM [Concomitant]
     Active Substance: SULFAMETHOXAZOLE\TRIMETHOPRIM
     Dosage: FROM 0.4/2MG TO 80/400 MG
  9. SULFAMETHOXAZOLE\TRIMETHOPRIM [Concomitant]
     Active Substance: SULFAMETHOXAZOLE\TRIMETHOPRIM
     Dosage: 640 MG TMP/3200 MG SMX, DAILY
  10. PENTAMIDINE ISETHIONATE [Concomitant]
     Active Substance: PENTAMIDINE ISETHIONATE
     Indication: Antifungal prophylaxis
     Dosage: UNK, MO
  11. DEXAMETHASONE [Concomitant]
     Active Substance: DEXAMETHASONE
     Indication: Tuberculoma
     Dosage: UNK

REACTIONS (7)
  - Cerebral toxoplasmosis [Recovered/Resolved]
  - Immune reconstitution inflammatory syndrome [Unknown]
  - Ascites [Unknown]
  - Tuberculoma [Unknown]
  - Immunosuppression [Unknown]
  - Infection protozoal [Unknown]
  - Headache [Recovering/Resolving]
